FAERS Safety Report 14148539 (Version 1)
Quarter: 2017Q4

REPORT INFORMATION
  Report Type: Spontaneous
  Country: US (occurrence: US)
  Receive Date: 20171031
  Receipt Date: 20171031
  Transmission Date: 20180321
  Serious: No
  Sender: FDA-Public Use
  Company Number: None

PATIENT
  Age: 73 Year
  Sex: Male

DRUGS (10)
  1. LABETALOL [Concomitant]
     Active Substance: LABETALOL\LABETALOL HYDROCHLORIDE
  2. IBUPROFEN. [Concomitant]
     Active Substance: IBUPROFEN
  3. VITAMIN D [Concomitant]
     Active Substance: CHOLECALCIFEROL
  4. VITAMIN C [Concomitant]
     Active Substance: ASCORBIC ACID
  5. PRAZOSIN. [Suspect]
     Active Substance: PRAZOSIN
     Indication: HYPERTENSION
     Dosage: ?          QUANTITY:1 CAPSULE(S);?
     Route: 048
  6. PREDNISONE. [Concomitant]
     Active Substance: PREDNISONE
  7. ASA EC [Concomitant]
     Active Substance: ASPIRIN
  8. FISH OIL [Concomitant]
     Active Substance: FISH OIL
  9. LECITHIN [Concomitant]
     Active Substance: LECITHIN
  10. PYRIDOSTIGMINE [Concomitant]
     Active Substance: PYRIDOSTIGMINE

REACTIONS (1)
  - Systemic lupus erythematosus [None]

NARRATIVE: CASE EVENT DATE: 20170901
